FAERS Safety Report 26144553 (Version 2)
Quarter: 2025Q4

REPORT INFORMATION
  Report Type: Report from Study
  Country: US (occurrence: US)
  Receive Date: 20251211
  Receipt Date: 20251223
  Transmission Date: 20260117
  Serious: Yes (Other)
  Sender: BAYER HEALTHCARE PHARMACEUTICALS INC.
  Company Number: US-BAYER-2025A117499

PATIENT
  Age: 65 Year
  Sex: Female
  Weight: 99.773 kg

DRUGS (27)
  1. ADEMPAS [Suspect]
     Active Substance: RIOCIGUAT
     Indication: Pulmonary arterial hypertension
     Dosage: UNK
     Dates: start: 20240918
  2. ADEMPAS [Suspect]
     Active Substance: RIOCIGUAT
     Indication: Pulmonary arterial hypertension
     Dosage: UNK
     Dates: start: 20251010
  3. ADEMPAS [Suspect]
     Active Substance: RIOCIGUAT
     Indication: Pulmonary arterial hypertension
     Dosage: 1 MG, TID
     Route: 048
  4. VELETRI [Suspect]
     Active Substance: EPOPROSTENOL
  5. VELETRI [Suspect]
     Active Substance: EPOPROSTENOL
     Dosage: UNK
  6. STERILE WATER [Concomitant]
     Active Substance: WATER
  7. VITAMIN D3 [Concomitant]
     Active Substance: CHOLECALCIFEROL
  8. SYNTHROID [Concomitant]
     Active Substance: LEVOTHYROXINE SODIUM
  9. SODIUM CHLORIDE [Concomitant]
     Active Substance: SODIUM CHLORIDE
  10. ESOMEPRAZOLE MAGNESIUM [Concomitant]
     Active Substance: ESOMEPRAZOLE MAGNESIUM
  11. IVABRADINE HCL [Concomitant]
  12. POTASSIUM CHLORIDE [Concomitant]
     Active Substance: POTASSIUM CHLORIDE
  13. OPSUMIT [Concomitant]
     Active Substance: MACITENTAN
  14. VITAMINS [Concomitant]
     Active Substance: VITAMINS
  15. BUPROPION HYDROCHLORIDE [Concomitant]
     Active Substance: BUPROPION HYDROCHLORIDE
  16. PROBIOTICS NOS [Concomitant]
     Active Substance: PROBIOTICS NOS
  17. OXYGEN [Concomitant]
     Active Substance: OXYGEN
  18. BENADRYL [Concomitant]
     Active Substance: DIPHENHYDRAMINE HYDROCHLORIDE
  19. NALTREXONE HYDROCHLORIDE [Concomitant]
     Active Substance: NALTREXONE HYDROCHLORIDE
  20. TRIAMCINOLONE [Concomitant]
     Active Substance: TRIAMCINOLONE
  21. TYLENOL EXTRA STRENGTH [Concomitant]
     Active Substance: ACETAMINOPHEN
  22. MODERNA COVID-19 VACCINE [Concomitant]
     Active Substance: ELASOMERAN
  23. SODIUM CHLORIDE [Concomitant]
     Active Substance: SODIUM CHLORIDE
  24. TORSEMIDE [Concomitant]
     Active Substance: TORSEMIDE
  25. COLLAGEN [Concomitant]
     Active Substance: COLLAGEN
  26. FLUOXETINE HYDROCHLORIDE [Concomitant]
     Active Substance: FLUOXETINE HYDROCHLORIDE
  27. YUTREPIA [Concomitant]
     Active Substance: TREPROSTINIL SODIUM

REACTIONS (11)
  - Hypertension [None]
  - Abdominal pain upper [None]
  - Illness [None]
  - Malaise [Recovering/Resolving]
  - Catheter site pain [None]
  - Catheter site vesicles [None]
  - Dyspepsia [None]
  - Middle insomnia [None]
  - Hypertension [None]
  - Night blindness [None]
  - Flushing [None]

NARRATIVE: CASE EVENT DATE: 20250827
